FAERS Safety Report 4840434-4 (Version None)
Quarter: 2005Q4

REPORT INFORMATION
  Report Type: 
  Country: None (occurrence: None)
  Receive Date: 20051128
  Receipt Date: 20051128
  Transmission Date: 20060501
  Serious: No
  Sender: FDA-Public Use
  Company Number: None

PATIENT
  Age: 9 Year
  Sex: Female
  Weight: 34 kg

DRUGS (1)
  1. AUGMENTIN [Suspect]
     Indication: CHRONIC SINUSITIS
     Dosage: 10 ML PO BID
     Route: 048

REACTIONS (1)
  - TOOTH DISCOLOURATION [None]
